FAERS Safety Report 10983259 (Version 1)
Quarter: 2015Q2

REPORT INFORMATION
  Report Type: Spontaneous
  Country: US (occurrence: US)
  Receive Date: 20150403
  Receipt Date: 20150403
  Transmission Date: 20150821
  Serious: No
  Sender: FDA-Public Use
  Company Number: US-BAXTER-2015BAX015533

PATIENT
  Age: 68 Year
  Sex: Male
  Weight: 81.72 kg

DRUGS (2)
  1. ARALAST NP [Suspect]
     Active Substance: .ALPHA.1-PROTEINASE INHIBITOR HUMAN
     Indication: ALPHA-1 ANTI-TRYPSIN DEFICIENCY
     Dosage: 5000 UNITS
     Route: 042
  2. ARALAST NP [Suspect]
     Active Substance: .ALPHA.1-PROTEINASE INHIBITOR HUMAN
     Dosage: 5000 UNITS
     Route: 042
     Dates: start: 20150218

REACTIONS (1)
  - Lung hyperinflation [Unknown]

NARRATIVE: CASE EVENT DATE: 201502
